FAERS Safety Report 4900290-2 (Version None)
Quarter: 2006Q1

REPORT INFORMATION
  Report Type: 
  Country: None (occurrence: None)
  Receive Date: 20060203
  Receipt Date: 20051229
  Transmission Date: 20060701
  Serious: Yes (Death, Hospitalization, Other)
  Sender: FDA-Public Use
  Company Number: GB-GILEAD-2006-0009054

PATIENT
  Sex: Male
  Weight: 70 kg

DRUGS (6)
  1. VIREAD [Suspect]
     Indication: HIV INFECTION
     Route: 048
     Dates: start: 20041116, end: 20051227
  2. DIDANOSINE [Suspect]
     Indication: HIV INFECTION
     Route: 048
     Dates: start: 20041116, end: 20051227
  3. ZIDOVUDINE [Suspect]
     Indication: HIV INFECTION
     Route: 048
     Dates: start: 20051212, end: 20051227
  4. KALETRA [Suspect]
     Indication: HIV INFECTION
     Route: 048
     Dates: start: 20041116, end: 20051227
  5. COTRIM [Concomitant]
     Route: 048
     Dates: start: 20051101
  6. METOCLOPRAMIDE [Concomitant]
     Route: 048
     Dates: start: 20051220

REACTIONS (5)
  - CARDIAC ARREST [None]
  - LACTIC ACIDOSIS [None]
  - POST HERPETIC NEURALGIA [None]
  - RENAL FAILURE ACUTE [None]
  - VOMITING [None]
